APPROVED DRUG PRODUCT: BRICANYL
Active Ingredient: TERBUTALINE SULFATE
Strength: 0.2MG/INH
Dosage Form/Route: AEROSOL, METERED;INHALATION
Application: N018000 | Product #001
Applicant: SANOFI AVENTIS US LLC
Approved: Mar 19, 1985 | RLD: No | RS: No | Type: DISCN